FAERS Safety Report 22295439 (Version 1)
Quarter: 2023Q2

REPORT INFORMATION
  Report Type: Spontaneous
  Country: US (occurrence: None)
  Receive Date: 20230506
  Receipt Date: 20230506
  Transmission Date: 20230722
  Serious: Yes (Other)
  Sender: FDA-Public Use
  Company Number: None

PATIENT
  Age: 54 Year
  Sex: Male
  Weight: 94.5 kg

DRUGS (2)
  1. STRATTERA [Suspect]
     Active Substance: ATOMOXETINE HYDROCHLORIDE
     Indication: Brain fog
     Dates: start: 20230506, end: 20230506
  2. STRATTERA [Concomitant]
     Active Substance: ATOMOXETINE HYDROCHLORIDE
     Dates: start: 20230506, end: 20230506

REACTIONS (4)
  - Suicidal ideation [None]
  - Fatigue [None]
  - Somnolence [None]
  - Depression [None]

NARRATIVE: CASE EVENT DATE: 20230506
